FAERS Safety Report 5599450-X (Version None)
Quarter: 2008Q1

REPORT INFORMATION
  Report Type: 
  Country: None (occurrence: None)
  Receive Date: 20080123
  Receipt Date: 20080114
  Transmission Date: 20080703
  Serious: Yes (Other)
  Sender: FDA-Public Use
  Company Number: GB-PFIZER INC-2008004641

PATIENT
  Age: 51 Year
  Sex: Male
  Weight: 105 kg

DRUGS (4)
  1. LIPITOR [Suspect]
     Indication: HYPERLIPIDAEMIA
     Route: 048
     Dates: start: 20070101, end: 20071107
  2. FENOFIBRATE [Concomitant]
  3. METFORMIN HCL [Concomitant]
  4. VALSARTAN [Concomitant]

REACTIONS (1)
  - GYNAECOMASTIA [None]
